FAERS Safety Report 5603674-2 (Version None)
Quarter: 2008Q1

REPORT INFORMATION
  Report Type: 
  Country: None (occurrence: None)
  Receive Date: 20080123
  Receipt Date: 20080108
  Transmission Date: 20080703
  Serious: Yes (Hospitalization)
  Sender: FDA-Public Use
  Company Number: 231207J07USA

PATIENT
  Age: 51 Year
  Sex: Female
  Weight: 48.9885 kg

DRUGS (1)
  1. REBIF [Suspect]
     Indication: MULTIPLE SCLEROSIS
     Dosage: 22 MCG, 3 IN 1 WEEKS,
     Dates: start: 20050429, end: 20071008

REACTIONS (4)
  - CLOSTRIDIUM DIFFICILE TOXIN TEST POSITIVE [None]
  - ERYTHEMA NODOSUM [None]
  - OEDEMA PERIPHERAL [None]
  - RASH [None]
